FAERS Safety Report 7576431-8 (Version None)
Quarter: 2011Q2

REPORT INFORMATION
  Report Type: 
  Country: None (occurrence: None)
  Receive Date: 20110628
  Receipt Date: 20110610
  Transmission Date: 20111010
  Serious: Yes (Death, Other)
  Sender: FDA-Public Use
  Company Number: US-BAYER-201041818NA

PATIENT
  Age: 54 Year
  Sex: Male
  Weight: 88 kg

DRUGS (9)
  1. TRASYLOL [Suspect]
     Indication: CORONARY ARTERY BYPASS
  2. NORVASC [Concomitant]
  3. TOPROL-XL [Concomitant]
  4. IMDUR [Concomitant]
  5. PEPCID [Concomitant]
  6. DOCUSATE [Concomitant]
  7. TRASYLOL [Suspect]
     Indication: CATHETERISATION CARDIAC
     Route: 042
     Dates: start: 20050202, end: 20050202
  8. AMBIEN [Concomitant]
  9. REGLAN [Concomitant]

REACTIONS (12)
  - DEATH [None]
  - EMOTIONAL DISTRESS [None]
  - FEAR [None]
  - RENAL FAILURE [None]
  - STRESS [None]
  - UNEVALUABLE EVENT [None]
  - PAIN [None]
  - RENAL INJURY [None]
  - RENAL IMPAIRMENT [None]
  - MYOCARDIAL INFARCTION [None]
  - ANXIETY [None]
  - MULTI-ORGAN FAILURE [None]
